FAERS Safety Report 16790689 (Version 1)
Quarter: 2019Q4

REPORT INFORMATION
  Report Type: Spontaneous
  Country: US (occurrence: US)
  Receive Date: 20190909
  Receipt Date: 20190909
  Transmission Date: 20200122
  Serious: Yes (Hospitalization)
  Sender: FDA-Public Use
  Company Number: None

PATIENT
  Age: 63 Year
  Sex: Male

DRUGS (4)
  1. VALGANCICLOV [Concomitant]
  2. MAG OXIDE [Concomitant]
     Active Substance: MAGNESIUM OXIDE
  3. MYCOPHENOLIC [Suspect]
     Active Substance: MYCOPHENOLIC ACID
     Indication: HEART TRANSPLANT
     Route: 048
  4. PANTOPRAZOLE [Concomitant]
     Active Substance: PANTOPRAZOLE

REACTIONS (3)
  - Chest pain [None]
  - Headache [None]
  - Pain in extremity [None]

NARRATIVE: CASE EVENT DATE: 20190909
